FAERS Safety Report 22229980 (Version 1)
Quarter: 2023Q2

REPORT INFORMATION
  Report Type: Spontaneous
  Country: US (occurrence: None)
  Receive Date: 20230418
  Receipt Date: 20230418
  Transmission Date: 20230721
  Serious: Yes (Hospitalization)
  Sender: FDA-Public Use
  Company Number: None

PATIENT
  Age: 76 Year
  Sex: Male
  Weight: 71.21 kg

DRUGS (15)
  1. LENALIDOMIDE [Suspect]
     Active Substance: LENALIDOMIDE
     Indication: Plasma cell myeloma
     Dosage: FREQUENCY : DAILY;?
     Route: 048
  2. DEXAMETHASONE [Concomitant]
  3. ELIQUIS [Concomitant]
  4. VITAMIN B12 [Concomitant]
  5. ESCITALOOPRAM [Concomitant]
  6. VITAMIN D3 [Concomitant]
  7. LEVOTHYROXINE [Concomitant]
  8. LOSARTAN [Concomitant]
  9. HYDROCHLOROTHIAZIDE [Concomitant]
  10. METOPROLOL [Concomitant]
     Active Substance: METOPROLOL
  11. PANTOPRAZOLE [Concomitant]
  12. PRESERVISION AREDS [Concomitant]
  13. TRAZODONE [Concomitant]
  14. VALACYCLOVIR [Concomitant]
  15. MENAQUINONE 6 [Concomitant]
     Active Substance: MENAQUINONE 6

REACTIONS (1)
  - Pneumonia [None]
